FAERS Safety Report 4905003-6 (Version None)
Quarter: 2006Q1

REPORT INFORMATION
  Report Type: 
  Country: None (occurrence: None)
  Receive Date: 20060208
  Receipt Date: 20051103
  Transmission Date: 20060701
  Serious: No
  Sender: FDA-Public Use
  Company Number: US-GLAXOSMITHKLINE-A0580770A

PATIENT
  Age: 53 Year
  Sex: Male

DRUGS (1)
  1. PAXIL [Suspect]
     Dosage: 5MG PER DAY
     Route: 048
     Dates: start: 20040101

REACTIONS (4)
  - EJACULATION FAILURE [None]
  - EXCITABILITY [None]
  - FEELING JITTERY [None]
  - INSOMNIA [None]
